FAERS Safety Report 5275418-8 (Version None)
Quarter: 2007Q1

REPORT INFORMATION
  Report Type: 
  Country: None (occurrence: None)
  Receive Date: 20061213
  Receipt Date: 20040601
  Transmission Date: 20070707
  Serious: No
  Sender: FDA-Public Use
  Company Number: 2004UW09544

PATIENT
  Age: 11 Year
  Sex: Female
  Weight: 57.6068 kg

DRUGS (7)
  1. SEROQUEL [Suspect]
     Dosage: 50 MG HS PO
     Route: 047
     Dates: start: 20030301
  2. SEROQUEL [Suspect]
     Dosage: 100 MG DAILY PO
     Route: 048
  3. SEROQUEL [Suspect]
     Dosage: 400 MG DAILY PO
     Route: 048
  4. SEROQUEL [Suspect]
     Dosage: 300 MG HS PO
     Route: 048
  5. SEROQUEL [Suspect]
     Dosage: 100 MG HS PO
     Route: 048
  6. ADDERALL XR 10 [Suspect]
     Dosage: 30 MG PO
     Route: 048
     Dates: start: 20030401
  7. NEURONTIN [Suspect]
     Dosage: 2400 MG DAILY PO
     Route: 048
     Dates: start: 20021201

REACTIONS (1)
  - TARDIVE DYSKINESIA [None]
